FAERS Safety Report 8888731 (Version 1)
Quarter: 2012Q4

REPORT INFORMATION
  Report Type: Report from Study
  Country: MX (occurrence: MX)
  Receive Date: 20121106
  Receipt Date: 20121106
  Transmission Date: 20130627
  Serious: Yes (Death)
  Sender: FDA-Public Use
  Company Number: MX-BAYER-2012-115554

PATIENT
  Sex: Male

DRUGS (1)
  1. INTERFERON BETA - 1B [Suspect]

REACTIONS (1)
  - Death [Fatal]
